FAERS Safety Report 4451544-8 (Version None)
Quarter: 2004Q3

REPORT INFORMATION
  Report Type: 
  Country: None (occurrence: None)
  Receive Date: 20040915
  Receipt Date: 20040907
  Transmission Date: 20050211
  Serious: Yes (Hospitalization)
  Sender: FDA-Public Use
  Company Number: TPA2004A01012

PATIENT
  Age: 60 Year
  Sex: Female
  Weight: 71.2147 kg

DRUGS (12)
  1. ACTOS [Suspect]
     Indication: DIABETES MELLITUS NON-INSULIN-DEPENDENT
     Dosage: 30 MG, 1 IN 1 D, PER ORAL
     Route: 048
     Dates: start: 19990101
  2. LEVOXYL [Suspect]
     Indication: THYROID DISORDER
     Dosage: 200 MCG, 1 IN 1 D, PER ORAL
     Route: 048
     Dates: start: 19840101
  3. TOPROL-XL [Concomitant]
  4. HYDROCODONE/APAP (PROCET  /USA/) [Concomitant]
  5. ASPIRIN [Concomitant]
  6. GLYBURIDE [Concomitant]
  7. NITROSTAT [Concomitant]
  8. IMIPRAMINE [Concomitant]
  9. DOXYCYCLINE [Concomitant]
  10. CYCLOBENZAPRINE HCL [Concomitant]
  11. DOXAPAP-N (PROPACET) [Concomitant]
  12. MOBIC [Concomitant]

REACTIONS (23)
  - ABDOMINAL PAIN LOWER [None]
  - ARTHRALGIA [None]
  - BLOOD TEST ABNORMAL [None]
  - CHEST DISCOMFORT [None]
  - EXCORIATION [None]
  - FALL [None]
  - GASTROINTESTINAL DISORDER [None]
  - HAEMATOCRIT DECREASED [None]
  - HAEMATOMA [None]
  - HAEMOGLOBIN DECREASED [None]
  - HAEMORRHAGE [None]
  - HEPATIC STEATOSIS [None]
  - HYPERTHYROIDISM [None]
  - JOINT SPRAIN [None]
  - JOINT SWELLING [None]
  - MOVEMENT DISORDER [None]
  - MUSCLE HAEMORRHAGE [None]
  - OEDEMA PERIPHERAL [None]
  - OSTEOARTHRITIS [None]
  - PAIN IN EXTREMITY [None]
  - ROTATOR CUFF SYNDROME [None]
  - TACHYCARDIA [None]
  - VOMITING [None]
